FAERS Safety Report 9526613 (Version 2)
Quarter: 2013Q3

REPORT INFORMATION
  Report Type: Spontaneous
  Country: TR (occurrence: TR)
  Receive Date: 20130916
  Receipt Date: 20130924
  Transmission Date: 20140515
  Serious: No
  Sender: FDA-Public Use
  Company Number: PHHY2013TR101247

PATIENT
  Sex: Female

DRUGS (7)
  1. DIGOXIN [Suspect]
     Indication: HEART VALVE INCOMPETENCE
     Dosage: 0.5 DF, QD (0.125 MG)
     Dates: end: 20130916
  2. DIGOXIN [Suspect]
     Dosage: 0.25 DF, QD (0.0625)
     Dates: start: 20130916
  3. VITAMIN B2 [Concomitant]
     Dosage: UNK UKN, UNK
  4. CO-ENZYME Q10 [Concomitant]
     Indication: MYOPATHY
  5. LASIX [Concomitant]
     Dosage: UNK UKN, UNK
  6. LEVOTIRON [Concomitant]
     Dosage: UNK UKN, UNK
  7. DAFLON [Concomitant]
     Dosage: UNK UKN, UNK

REACTIONS (3)
  - Hallucination [Not Recovered/Not Resolved]
  - Quality of life decreased [Unknown]
  - Oedema [Unknown]
